FAERS Safety Report 7648703-X (Version None)
Quarter: 2011Q3

REPORT INFORMATION
  Report Type: 
  Country: None (occurrence: None)
  Receive Date: 20110801
  Receipt Date: 20110725
  Transmission Date: 20111222
  Serious: Yes (Other)
  Sender: FDA-Public Use
  Company Number: PHHY2011JP68690

PATIENT
  Sex: Female

DRUGS (3)
  1. PARLODEL [Suspect]
     Dosage: UNK UKN, UNK
     Route: 048
  2. ALPRAZOLAM [Concomitant]
     Dosage: UNK UKN, UNK
     Route: 048
  3. DOGMATYL [Suspect]
     Dosage: UNK UKN, UNK
     Route: 048

REACTIONS (1)
  - METRORRHAGIA [None]
